FAERS Safety Report 6795093-0 (Version None)
Quarter: 2010Q2

REPORT INFORMATION
  Report Type: 
  Country: None (occurrence: None)
  Receive Date: 20100625
  Receipt Date: 20100622
  Transmission Date: 20101027
  Serious: Yes (Life-Threatening)
  Sender: FDA-Public Use
  Company Number: PHHY2010FR40971

PATIENT
  Sex: Male

DRUGS (4)
  1. LEPONEX [Suspect]
     Dosage: 0.5 DF DAILY
  2. MODOPAR [Concomitant]
     Dosage: 125 MG , 3 DF DAILY AND 63.5 MG, 3 DF DAILY
  3. ARICEPT [Concomitant]
     Dosage: 1 DF DAILY
  4. EFFEXOR [Concomitant]
     Dosage: 37.5 MG, 1 DF IN THE EVENING

REACTIONS (6)
  - CONFUSIONAL STATE [None]
  - DYSARTHRIA [None]
  - DYSPHAGIA [None]
  - HALLUCINATIONS, MIXED [None]
  - ISCHAEMIC STROKE [None]
  - MOTOR DYSFUNCTION [None]
